FAERS Safety Report 13849494 (Version 1)
Quarter: 2017Q3

REPORT INFORMATION
  Report Type: Spontaneous
  Country: US (occurrence: US)
  Receive Date: 20170809
  Receipt Date: 20170809
  Transmission Date: 20171127
  Serious: No
  Sender: FDA-Public Use
  Company Number: US-PFIZER INC-2017339070

PATIENT
  Sex: Female

DRUGS (3)
  1. PREMPRO [Suspect]
     Active Substance: ESTROGENS, CONJUGATED\MEDROXYPROGESTERONE ACETATE
     Dosage: 1 DF, 1X/DAY, [ESTROGENS CONJUGATED 0.3 MG]/[MEDROXYPROGESTERONE ACETATE - 1.5MG]
  2. SOLU-CORTEF [Suspect]
     Active Substance: HYDROCORTISONE SODIUM SUCCINATE
     Dosage: 100 MG, UNK
  3. METHOTREXATE SODIUM. [Suspect]
     Active Substance: METHOTREXATE SODIUM
     Dosage: 10 MG, WEEKLY

REACTIONS (14)
  - Gastrointestinal disorder [Unknown]
  - Insomnia [Unknown]
  - Duodenogastric reflux [Unknown]
  - Anxiety [Unknown]
  - Fatigue [Unknown]
  - Musculoskeletal stiffness [Unknown]
  - Synovitis [Unknown]
  - Joint swelling [Unknown]
  - Myalgia [Unknown]
  - Soft tissue swelling [Unknown]
  - Dyspepsia [Unknown]
  - Arthralgia [Unknown]
  - Lymphoedema [Unknown]
  - Blood pressure increased [Unknown]
